FAERS Safety Report 18712913 (Version 1)
Quarter: 2021Q1

REPORT INFORMATION
  Report Type: Spontaneous
  Country: US (occurrence: US)
  Receive Date: 20210107
  Receipt Date: 20210107
  Transmission Date: 20210419
  Serious: No
  Sender: FDA-Public Use
  Company Number: US-BIOVITRUM-2021US0156

PATIENT
  Age: 1 Year
  Sex: Male
  Weight: 11 kg

DRUGS (6)
  1. MIRALAX [Concomitant]
     Active Substance: POLYETHYLENE GLYCOL 3350
     Dosage: 17G/DOSE POWDER
  2. OMEPRAZOLE. [Concomitant]
     Active Substance: OMEPRAZOLE
  3. SYNAGIS [Suspect]
     Active Substance: PALIVIZUMAB
     Indication: ANTIVIRAL PROPHYLAXIS
     Dosage: 100MG/1ML VL LIQUID
     Route: 030
  4. PROBIOTIC [Concomitant]
     Active Substance: PROBIOTICS NOS
     Dosage: 250MM CELL TAB CHEW
  5. POLY?VI?SOL WITH IRON [Concomitant]
     Active Substance: IRON\VITAMINS
  6. ALBUTEROL SULFATE HFA [Concomitant]
     Active Substance: ALBUTEROL SULFATE

REACTIONS (3)
  - Rhinitis [Unknown]
  - Unevaluable event [Unknown]
  - Pyrexia [Unknown]

NARRATIVE: CASE EVENT DATE: 202009
